FAERS Safety Report 15404922 (Version 1)
Quarter: 2018Q3

REPORT INFORMATION
  Report Type: Spontaneous
  Country: US (occurrence: US)
  Receive Date: 20180920
  Receipt Date: 20180920
  Transmission Date: 20181010
  Serious: No
  Sender: FDA-Public Use
  Company Number: US-BAUSCH-BL-2018-007884

PATIENT
  Age: 67 Year
  Sex: Female
  Weight: 59.02 kg

DRUGS (2)
  1. PROGESTERONE. [Concomitant]
     Active Substance: PROGESTERONE
     Indication: HORMONE REPLACEMENT THERAPY
     Dosage: ONE POP, ONCE A DAY
     Route: 061
  2. ERYTHROMYCIN OPHTHALMIC OINTMENT USP 0.5% [Suspect]
     Active Substance: ERYTHROMYCIN
     Indication: PROPHYLAXIS
     Dosage: A QUARTER INCH PER EYE, ONCE A DAY, AT NIGHT, STRENGTH: 5 MG IN 1 G
     Route: 047
     Dates: start: 20180115, end: 2018

REACTIONS (3)
  - Foreign body in eye [Recovered/Resolved]
  - Eye pain [Recovered/Resolved]
  - Lacrimation increased [Not Recovered/Not Resolved]

NARRATIVE: CASE EVENT DATE: 2018
